FAERS Safety Report 5601347-3 (Version None)
Quarter: 2008Q1

REPORT INFORMATION
  Report Type: 
  Country: None (occurrence: None)
  Receive Date: 20080118
  Receipt Date: 20080104
  Transmission Date: 20080703
  Serious: Yes (Death)
  Sender: FDA-Public Use
  Company Number: 2008000968

PATIENT
  Age: 31 Year
  Sex: Female

DRUGS (6)
  1. DIPHENHYDRAMINE HCL [Suspect]
     Dosage: ORAL
     Route: 048
  2. ACETAMINOPHEN [Suspect]
     Dosage: ORAL
     Route: 048
  3. LAMOTRIGINE [Suspect]
     Dosage: ORAL
     Route: 048
  4. PAROXETINE HCL [Suspect]
     Dosage: ORAL
     Route: 048
  5. QUETIAPINE FUMARATE [Suspect]
     Dosage: ORAL
     Route: 048
  6. FOLIC ACID [Concomitant]

REACTIONS (14)
  - ACUTE PULMONARY OEDEMA [None]
  - ATRIAL FIBRILLATION [None]
  - BLOOD PRESSURE DIASTOLIC DECREASED [None]
  - BLOOD PRESSURE SYSTOLIC INCREASED [None]
  - BRAIN HERNIATION [None]
  - BRAIN OEDEMA [None]
  - CARDIAC ARREST [None]
  - COMA [None]
  - HEART RATE DECREASED [None]
  - HEART RATE INCREASED [None]
  - MULTIPLE DRUG OVERDOSE [None]
  - RESPIRATORY DEPRESSION [None]
  - STATUS EPILEPTICUS [None]
  - VENTRICULAR TACHYCARDIA [None]
